FAERS Safety Report 12754017 (Version 2)
Quarter: 2017Q3

REPORT INFORMATION
  Report Type: Spontaneous
  Country: US (occurrence: US)
  Receive Date: 20160915
  Receipt Date: 20170731
  Transmission Date: 20171127
  Serious: Yes (Death)
  Sender: FDA-Public Use
  Company Number: US-ASTELLAS-2015US046268

PATIENT
  Age: 85 Year
  Sex: Male

DRUGS (2)
  1. XTANDI [Suspect]
     Active Substance: ENZALUTAMIDE
     Route: 048
  2. XTANDI [Suspect]
     Active Substance: ENZALUTAMIDE
     Indication: HORMONE-REFRACTORY PROSTATE CANCER
     Dosage: 80 MG (40 MG X 2 CAPSULES), ONCE DAILY
     Route: 065

REACTIONS (4)
  - Death [Fatal]
  - Confusional state [Unknown]
  - Memory impairment [Unknown]
  - Underdose [Unknown]

NARRATIVE: CASE EVENT DATE: 201506
